FAERS Safety Report 9775489 (Version 1)
Quarter: 2013Q4

REPORT INFORMATION
  Report Type: Spontaneous
  Country: IT (occurrence: IT)
  Receive Date: 20131220
  Receipt Date: 20131220
  Transmission Date: 20140711
  Serious: Yes (Other)
  Sender: FDA-Public Use
  Company Number: IT-TEVA-450012ISR

PATIENT
  Age: 30 Year
  Sex: Male

DRUGS (1)
  1. OLANZAPINA TEVA [Suspect]
     Indication: SCHIZOPHRENIA
     Dosage: 10 MILLIGRAM DAILY;
     Route: 048
     Dates: start: 20130701, end: 20130901

REACTIONS (2)
  - Drug ineffective [Recovered/Resolved]
  - Psychotic disorder [Recovered/Resolved]
